FAERS Safety Report 10439297 (Version 2)
Quarter: 2014Q3

REPORT INFORMATION
  Report Type: Spontaneous
  Country: US (occurrence: US)
  Receive Date: 20140908
  Receipt Date: 20140908
  Transmission Date: 20150326
  Serious: No
  Sender: FDA-Public Use
  Company Number: US-BRISTOL-MYERS SQUIBB COMPANY-19202605

PATIENT
  Age: 48 Year
  Sex: Male

DRUGS (1)
  1. ABILIFY [Suspect]
     Active Substance: ARIPIPRAZOLE

REACTIONS (4)
  - Drug dose omission [Unknown]
  - Cough [Recovered/Resolved]
  - Productive cough [Recovered/Resolved]
  - Feeling abnormal [Unknown]
